FAERS Safety Report 8365578-4 (Version None)
Quarter: 2012Q2

REPORT INFORMATION
  Report Type: 
  Country: None (occurrence: None)
  Receive Date: 20120516
  Receipt Date: 20120511
  Transmission Date: 20120825
  Serious: Yes (Hospitalization)
  Sender: FDA-Public Use
  Company Number: US-ROCHE-1028953

PATIENT
  Sex: Male
  Weight: 90.8 kg

DRUGS (6)
  1. NUTROPIN AQ [Suspect]
     Indication: GROWTH HORMONE DEFICIENCY
     Route: 058
     Dates: start: 20111219
  2. HYDROCORTISONE [Concomitant]
     Dosage: 15 MG QAM, 10 MG QPM
  3. LEVOTHYROXINE SODIUM [Concomitant]
  4. CYTOMEL [Concomitant]
  5. PAXIL [Concomitant]
  6. TOPAMAX [Concomitant]
     Dosage: AS REQUIRED (PRN)

REACTIONS (3)
  - VOMITING [None]
  - NAUSEA [None]
  - CHEST PAIN [None]
